FAERS Safety Report 5020606-9 (Version None)
Quarter: 2006Q2

REPORT INFORMATION
  Report Type: 
  Country: None (occurrence: None)
  Receive Date: 20060602
  Receipt Date: 20060524
  Transmission Date: 20061013
  Serious: Yes (Other)
  Sender: FDA-Public Use
  Company Number: 430015K06USA

PATIENT
  Age: 35 Year
  Sex: Female
  Weight: 108.9 kg

DRUGS (1)
  1. NOVANTRONE [Suspect]
     Indication: MULTIPLE SCLEROSIS
     Dates: end: 20031119

REACTIONS (4)
  - EJECTION FRACTION DECREASED [None]
  - PERICARDIAL EFFUSION [None]
  - VENTRICULAR DYSFUNCTION [None]
  - VENTRICULAR INTERNAL DIAMETER ABNORMAL [None]
